FAERS Safety Report 6976435-X (Version None)
Quarter: 2010Q3

REPORT INFORMATION
  Report Type: 
  Country: None (occurrence: None)
  Receive Date: 20100910
  Receipt Date: 20100901
  Transmission Date: 20110219
  Serious: Yes (Hospitalization, Other)
  Sender: FDA-Public Use
  Company Number: US-SANOFI-AVENTIS-2010SA052678

PATIENT
  Age: 74 Year
  Sex: Female
  Weight: 74.9 kg

DRUGS (18)
  1. TAXOTERE [Suspect]
     Dates: start: 20100625, end: 20100806
  2. GEMZAR [Suspect]
     Dates: start: 20100401, end: 20100611
  3. CISPLATIN [Suspect]
     Dates: start: 20100401, end: 20100611
  4. INVESTIGATIONAL DRUG [Concomitant]
     Dates: start: 20100401, end: 20100422
  5. INVESTIGATIONAL DRUG [Concomitant]
     Dates: start: 20100522, end: 20100623
  6. INVESTIGATIONAL DRUG [Concomitant]
     Dates: start: 20100423, end: 20100521
  7. INVESTIGATIONAL DRUG [Concomitant]
     Dates: start: 20100722, end: 20100818
  8. ALPRAZOLAM [Concomitant]
     Indication: PROPHYLAXIS
     Dates: start: 20100219
  9. BENAZEPRIL HYDROCHLORIDE AND HYDROCHLOROTHIAZIDE [Concomitant]
     Indication: PROPHYLAXIS
     Dates: start: 20050615
  10. FELODIPINE [Concomitant]
     Indication: PROPHYLAXIS
     Dates: start: 20070206
  11. FOLIC ACID [Concomitant]
     Indication: PROPHYLAXIS
     Dates: start: 20100112
  12. METFORMIN [Concomitant]
     Indication: PROPHYLAXIS
     Dates: start: 20090121
  13. SIMVASTATIN [Concomitant]
     Indication: PROPHYLAXIS
     Dates: start: 20081201
  14. PROMETHAZINE [Concomitant]
     Indication: PROPHYLAXIS
     Dates: start: 20100331
  15. ALOE VERA/MENTHOL [Concomitant]
     Indication: ARTHRITIS
  16. COLACE [Concomitant]
     Indication: PROPHYLAXIS
     Dates: start: 20100403
  17. ACETAMINOPHEN AND HYDROCODONE BITARTRATE [Concomitant]
     Indication: PROPHYLAXIS
     Dates: start: 20100412
  18. PROCRIT [Concomitant]
     Dates: start: 20100604

REACTIONS (5)
  - MENTAL STATUS CHANGES [None]
  - METABOLIC ACIDOSIS [None]
  - PNEUMONIA [None]
  - RENAL FAILURE ACUTE [None]
  - RESPIRATORY DISTRESS [None]
